FAERS Safety Report 23868794 (Version 3)
Quarter: 2024Q2

REPORT INFORMATION
  Report Type: Spontaneous
  Country: US (occurrence: US)
  Receive Date: 20240517
  Receipt Date: 20240624
  Transmission Date: 20240715
  Serious: Yes (Death, Hospitalization, Other)
  Sender: FDA-Public Use
  Company Number: US-PFIZER INC-202400108724

PATIENT
  Age: 83 Year
  Sex: Male

DRUGS (1)
  1. VYNDAMAX [Suspect]
     Active Substance: TAFAMIDIS
     Indication: Amyloidosis
     Dosage: 61 MG

REACTIONS (7)
  - Death [Fatal]
  - Pneumonia [Unknown]
  - Aspiration [Unknown]
  - Oesophageal achalasia [Unknown]
  - Endotracheal intubation [Unknown]
  - Dysphagia [Unknown]
  - Oesophageal disorder [Unknown]

NARRATIVE: CASE EVENT DATE: 20240618
